FAERS Safety Report 26044802 (Version 1)
Quarter: 2025Q4

REPORT INFORMATION
  Report Type: Spontaneous
  Country: US (occurrence: US)
  Receive Date: 20251114
  Receipt Date: 20251114
  Transmission Date: 20260118
  Serious: No
  Sender: OPTINOSE INC
  Company Number: US-OptiNose US, Inc-2024OPT000062

PATIENT
  Age: 81 Year
  Sex: Female

DRUGS (3)
  1. XHANCE [Suspect]
     Active Substance: FLUTICASONE PROPIONATE
     Indication: Chronic rhinosinusitis with nasal polyps
     Dosage: 186 MICROGRAM, BID
     Route: 045
     Dates: start: 20240601, end: 20241218
  2. XHANCE [Suspect]
     Active Substance: FLUTICASONE PROPIONATE
     Dosage: 186 MICROGRAM, BID
     Route: 045
     Dates: start: 202405, end: 20240612
  3. DEVICE [Suspect]
     Active Substance: DEVICE
     Indication: Chronic rhinosinusitis with nasal polyps
     Dosage: UNK UNK

REACTIONS (7)
  - Myalgia [Unknown]
  - Hypersomnia [Unknown]
  - Malaise [Unknown]
  - Asthma [Unknown]
  - Weight decreased [Recovered/Resolved]
  - Fatigue [Recovered/Resolved]
  - Epistaxis [Recovered/Resolved]

NARRATIVE: CASE EVENT DATE: 20240610
